FAERS Safety Report 21308547 (Version 2)
Quarter: 2024Q2

REPORT INFORMATION
  Report Type: Spontaneous
  Country: JP (occurrence: JP)
  Receive Date: 20220908
  Receipt Date: 20240418
  Transmission Date: 20240716
  Serious: Yes (Death, Other)
  Sender: FDA-Public Use
  Company Number: JP-ORG100014127-2022000973

PATIENT
  Age: 62 Year
  Sex: Female
  Weight: 48 kg

DRUGS (10)
  1. METYRAPONE [Suspect]
     Active Substance: METYRAPONE
     Indication: Cushing^s syndrome
     Dosage: 750MG/DAY
     Route: 048
     Dates: start: 20220819, end: 20220823
  2. Telmisartan 40 mg (telmisartan) [Concomitant]
     Indication: Product used for unknown indication
     Dates: end: 20220819
  3. Amlodipine OD tablet 5mg (amlodipine besilate) [Concomitant]
     Indication: Product used for unknown indication
     Dates: end: 20220819
  4. Spironolactone 25mg (spironolactone) [Concomitant]
     Indication: Product used for unknown indication
     Dates: end: 20220819
  5. Lansoprazole OD tablet 15mg (lansoprazole) [Concomitant]
     Indication: Product used for unknown indication
     Dates: end: 20220819
  6. Amitiza Capsules 24mg (Lubiprostone) [Concomitant]
     Indication: Product used for unknown indication
     Dates: end: 20220822
  7. Loxoprofen Tablets 60mg (loxoprofen sodium hydrate) [Concomitant]
     Indication: Product used for unknown indication
     Dates: end: 20220822
  8. SELEQUINONE Tablets 100mg (Trimebutine maleate) [Concomitant]
     Indication: Product used for unknown indication
     Dates: end: 20220822
  9. GLUCONIC ACID [Concomitant]
     Active Substance: GLUCONIC ACID
     Indication: Product used for unknown indication
     Dates: end: 20220819
  10. TRIMEBUTINE [Concomitant]
     Active Substance: TRIMEBUTINE
     Indication: Product used for unknown indication
     Dates: start: 20220818

REACTIONS (3)
  - Cerebral infarction [Fatal]
  - Renal impairment [Fatal]
  - Thrombocytopenia [Fatal]
